FAERS Safety Report 6154601-3 (Version None)
Quarter: 2009Q2

REPORT INFORMATION
  Report Type: 
  Country: None (occurrence: None)
  Receive Date: 20090414
  Receipt Date: 20090331
  Transmission Date: 20091009
  Serious: Yes (Death)
  Sender: FDA-Public Use
  Company Number: JP-ROCHE-625522

PATIENT
  Sex: Female

DRUGS (10)
  1. MYCOPHENOLATE MOFETIL [Suspect]
     Indication: DRUG USE FOR UNKNOWN INDICATION
     Route: 048
     Dates: start: 20070606, end: 20070715
  2. URSO 250 [Concomitant]
     Route: 048
     Dates: start: 20070530, end: 20070617
  3. OMEPRAL [Concomitant]
     Route: 048
     Dates: start: 20070530
  4. SOL-MELCORT [Concomitant]
     Route: 041
     Dates: start: 20070614
  5. PROGRAF [Concomitant]
     Dosage: FORM: INJECTABLE (NOT OTHERWISE SPECIFIED)
     Route: 050
  6. URSO 250 [Concomitant]
     Route: 048
  7. DIFLUCAN [Concomitant]
     Route: 048
  8. ZOVIRAX [Concomitant]
     Route: 048
  9. NEO-MINOPHAGEN C [Concomitant]
     Route: 041
  10. GRAN [Concomitant]
     Route: 030

REACTIONS (1)
  - DEATH [None]
